FAERS Safety Report 7523532-6 (Version None)
Quarter: 2011Q2

REPORT INFORMATION
  Report Type: 
  Country: None (occurrence: None)
  Receive Date: 20110601
  Receipt Date: 20110601
  Transmission Date: 20111010
  Serious: Yes (Other)
  Sender: FDA-Public Use
  Company Number: None

PATIENT
  Age: 42 Year
  Sex: Male
  Weight: 68.0396 kg

DRUGS (5)
  1. ROPINIROLE [Suspect]
     Indication: RESTLESS LEGS SYNDROME
     Dosage: 0.25MG QHS PO
     Route: 048
     Dates: start: 20110507, end: 20110514
  2. RIZFEVATO [Concomitant]
  3. TRAVADA [Concomitant]
  4. REGATAZ [Concomitant]
  5. GABAPENTIN [Concomitant]

REACTIONS (2)
  - DYSPNOEA EXERTIONAL [None]
  - SOMNOLENCE [None]
